FAERS Safety Report 4872508-6 (Version None)
Quarter: 2005Q4

REPORT INFORMATION
  Report Type: 
  Country: None (occurrence: None)
  Receive Date: 20051230
  Receipt Date: 20051230
  Transmission Date: 20060501
  Serious: Yes (Other)
  Sender: FDA-Public Use
  Company Number: None

PATIENT
  Age: 46 Year
  Sex: Female
  Weight: 90.2658 kg

DRUGS (6)
  1. MS CONTIN [Suspect]
     Indication: CERVICOBRACHIAL SYNDROME
     Dosage: 90 MG 4-5X /DAY
  2. MS CONTIN [Suspect]
     Indication: PAIN
     Dosage: 90 MG 4-5X /DAY
  3. BACLOFEN [Concomitant]
  4. VALIUM [Concomitant]
  5. HYPROMOPHONE [Concomitant]
  6. TRAZODONE HCL [Concomitant]

REACTIONS (4)
  - HEADACHE [None]
  - NAUSEA [None]
  - THERAPEUTIC RESPONSE UNEXPECTED WITH DRUG SUBSTITUTION [None]
  - VOMITING [None]
